FAERS Safety Report 8836587 (Version 2)
Quarter: 2012Q4

REPORT INFORMATION
  Report Type: 
  Country: US (occurrence: None)
  Receive Date: 20121009
  Receipt Date: 20121114
  Transmission Date: 20130627
  Serious: Yes (Hospitalization)
  Sender: FDA-Public Use
  Company Number: DSA_57992_2012

PATIENT
  Age: 38 Year
  Sex: Female
  Weight: 106.6 kg

DRUGS (2)
  1. XENAZINE 12.5 MG (NOT SPECIFIED) [Suspect]
     Indication: HUNTINGTON^S DISEASE
     Dosage: (Each morning and each evening) Oral)
     Route: 048
     Dates: start: 20120425, end: 20121001
  2. DIAZEPAM (UNKNOWN) [Concomitant]

REACTIONS (6)
  - Muscle spasms [None]
  - Paraesthesia [None]
  - Renal failure [None]
  - Dysuria [None]
  - Hypotension [None]
  - Heart rate increased [None]
